FAERS Safety Report 10511766 (Version 2)
Quarter: 2015Q4

REPORT INFORMATION
  Report Type: Report from Study
  Country: US (occurrence: US)
  Receive Date: 20141010
  Receipt Date: 20151124
  Transmission Date: 20160304
  Serious: Yes (Other)
  Sender: FDA-Public Use
  Company Number: US-AMGEN INC.-USASL2014076679

PATIENT
  Sex: Female

DRUGS (1)
  1. ENBREL [Suspect]
     Active Substance: ETANERCEPT
     Indication: RHEUMATOID ARTHRITIS
     Dosage: 50 MG, QWK
     Route: 065
     Dates: start: 20131112, end: 20151022

REACTIONS (5)
  - Fall [Unknown]
  - Feeling hot [Unknown]
  - Pain [Unknown]
  - Upper limb fracture [Unknown]
  - Scar excision [Unknown]

NARRATIVE: CASE EVENT DATE: 20140826
